FAERS Safety Report 7813970-6 (Version None)
Quarter: 2011Q4

REPORT INFORMATION
  Report Type: 
  Country: None (occurrence: None)
  Receive Date: 20111011
  Receipt Date: 20110926
  Transmission Date: 20120403
  Serious: Yes (Hospitalization)
  Sender: FDA-Public Use
  Company Number: 2011P1008307

PATIENT
  Age: 52 Year
  Sex: Female
  Weight: 99.7913 kg

DRUGS (7)
  1. FENTANYL [Suspect]
     Indication: PAIN
     Dosage: 1-2 PATCHES;Q72H;TDER
     Route: 062
     Dates: start: 20110612, end: 20110801
  2. DIAZEPAM [Concomitant]
  3. SOMA [Concomitant]
  4. OXYCODONE HCL [Concomitant]
  5. OMEPRAZOLE [Concomitant]
  6. LISINOPRIL ^20/25^ [Concomitant]
  7. FENTANYL [Suspect]
     Indication: PAIN
     Dosage: 0-2 PATCHES;Q72H;TDER
     Route: 062
     Dates: start: 20110612, end: 20110801

REACTIONS (22)
  - LIP SWELLING [None]
  - JOINT DISLOCATION [None]
  - URINARY TRACT INFECTION [None]
  - RASH MACULO-PAPULAR [None]
  - HYPERSENSITIVITY [None]
  - APPLICATION SITE PAIN [None]
  - FATIGUE [None]
  - HYPOTENSION [None]
  - STRESS [None]
  - ANGINA PECTORIS [None]
  - CHEST PAIN [None]
  - APPLICATION SITE ERYTHEMA [None]
  - BURNING SENSATION [None]
  - VAGINAL INFECTION [None]
  - HEART RATE INCREASED [None]
  - ROTATOR CUFF SYNDROME [None]
  - DRY MOUTH [None]
  - FEELING ABNORMAL [None]
  - GAIT DISTURBANCE [None]
  - HYPERHIDROSIS [None]
  - PALPITATIONS [None]
  - ERYTHEMA [None]
